FAERS Safety Report 8403434-3 (Version None)
Quarter: 2012Q1

REPORT INFORMATION
  Report Type: 
  Country: None (occurrence: None)
  Receive Date: 20120323
  Receipt Date: 20110427
  Transmission Date: 20120608
  Serious: Yes (Hospitalization)
  Sender: FDA-Public Use
  Company Number: 163-21880-11050028

PATIENT
  Age: 82 Year
  Sex: Female

DRUGS (4)
  1. PLAVIX [Concomitant]
  2. ASPIRIN [Concomitant]
  3. REVLIMID [Suspect]
     Indication: LYMPHOPROLIFERATIVE DISORDER
     Dosage: 5 MG, DAILY FOR 28 DAYS, PO
     Route: 048
     Dates: start: 20110325
  4. REVLIMID [Suspect]
     Indication: LYMPHOPROLIFERATIVE DISORDER
     Dosage: 5 MG, DAILY FOR 28 DAYS, PO
     Route: 048
     Dates: start: 20110305, end: 20110316

REACTIONS (1)
  - SMALL INTESTINAL OBSTRUCTION [None]
